FAERS Safety Report 20008647 (Version 1)
Quarter: 2021Q4

REPORT INFORMATION
  Report Type: Spontaneous
  Country: US (occurrence: US)
  Receive Date: 20211029
  Receipt Date: 20211029
  Transmission Date: 20220303
  Serious: No
  Sender: FDA-Public Use
  Company Number: US-NOVAST LABORATORIES INC.-2020NOV000315

PATIENT
  Age: 23 Year
  Sex: Female
  Weight: 49.89 kg

DRUGS (1)
  1. SHAROBEL [Suspect]
     Active Substance: NORETHINDRONE
     Indication: Contraception
     Dosage: 1 DOSAGE FORM, QD
     Route: 048
     Dates: start: 20200928

REACTIONS (1)
  - Abdominal discomfort [Unknown]

NARRATIVE: CASE EVENT DATE: 20200901
